FAERS Safety Report 17560408 (Version 2)
Quarter: 2020Q2

REPORT INFORMATION
  Report Type: Spontaneous
  Country: US (occurrence: US)
  Receive Date: 20200319
  Receipt Date: 20200618
  Transmission Date: 20200713
  Serious: No
  Sender: FDA-Public Use
  Company Number: US-PFIZER INC-2020117662

PATIENT
  Age: 74 Year
  Sex: Female

DRUGS (1)
  1. DAYPRO [Suspect]
     Active Substance: OXAPROZIN
     Indication: OSTEOARTHRITIS
     Dosage: 1 DF, 2X/DAY (ONE PO BID PER ORAL, TWICE DAILY WITH FOOD)
     Route: 048

REACTIONS (7)
  - Gastric disorder [Unknown]
  - Product use issue [Unknown]
  - Drug hypersensitivity [Unknown]
  - Insomnia [Unknown]
  - Feeding disorder [Unknown]
  - Abdominal pain upper [Unknown]
  - Off label use [Unknown]
